FAERS Safety Report 23626226 (Version 1)
Quarter: 2024Q1

REPORT INFORMATION
  Report Type: Spontaneous
  Country: US (occurrence: US)
  Receive Date: 20240313
  Receipt Date: 20240313
  Transmission Date: 20240409
  Serious: No
  Sender: FDA-Public Use
  Company Number: US-DAIICHI SANKYO, INC.-DSU-2024-104563AA

PATIENT
  Age: 40 Year
  Sex: Female

DRUGS (1)
  1. TURALIO [Suspect]
     Active Substance: PEXIDARTINIB HYDROCHLORIDE
     Indication: Product used for unknown indication
     Dosage: 250 MG, BID
     Route: 065
     Dates: start: 20231219

REACTIONS (2)
  - Drug monitoring procedure not performed [Unknown]
  - No adverse event [Unknown]

NARRATIVE: CASE EVENT DATE: 20240213
